FAERS Safety Report 17427438 (Version 3)
Quarter: 2020Q1

REPORT INFORMATION
  Report Type: Spontaneous
  Country: US (occurrence: US)
  Receive Date: 20200218
  Receipt Date: 20200304
  Transmission Date: 20200409
  Serious: No
  Sender: FDA-Public Use
  Company Number: US-SHIRE-US202006170

PATIENT
  Age: 82 Year
  Sex: Female
  Weight: 62.59 kg

DRUGS (3)
  1. LIALDA [Suspect]
     Active Substance: MESALAMINE
     Indication: COELIAC DISEASE
  2. LIALDA [Suspect]
     Active Substance: MESALAMINE
     Indication: CROHN^S DISEASE
  3. LIALDA [Suspect]
     Active Substance: MESALAMINE
     Indication: COLITIS
     Dosage: 1.2 GRAM, 2X/DAY:BID
     Route: 048
     Dates: start: 2018

REACTIONS (7)
  - Wrong technique in product usage process [Recovered/Resolved]
  - Feeling abnormal [Not Recovered/Not Resolved]
  - Insomnia [Unknown]
  - Nausea [Not Recovered/Not Resolved]
  - Product dose omission [Not Recovered/Not Resolved]
  - Malaise [Unknown]
  - Abdominal distension [Not Recovered/Not Resolved]

NARRATIVE: CASE EVENT DATE: 2020
